FAERS Safety Report 5889608-4 (Version None)
Quarter: 2008Q3

REPORT INFORMATION
  Report Type: 
  Country: None (occurrence: None)
  Receive Date: 20080919
  Receipt Date: 20080912
  Transmission Date: 20090109
  Serious: Yes (Hospitalization)
  Sender: FDA-Public Use
  Company Number: A0748432A

PATIENT
  Age: 43 Year
  Sex: Female
  Weight: 86.4 kg

DRUGS (8)
  1. AVANDIA [Suspect]
     Indication: TYPE 2 DIABETES MELLITUS
     Dosage: 4MG PER DAY
     Route: 048
     Dates: start: 20050201, end: 20070501
  2. JANUVIA [Concomitant]
     Dates: start: 20061220, end: 20070119
  3. BYETTA [Concomitant]
     Dates: start: 20070301, end: 20080610
  4. GLUCOPHAGE XR [Concomitant]
  5. ASPIRIN [Concomitant]
  6. ACTOS [Concomitant]
  7. PLAVIX [Concomitant]
  8. NITROGLYCERIN [Concomitant]

REACTIONS (3)
  - CARDIAC DISORDER [None]
  - DEPRESSION [None]
  - MYOCARDIAL INFARCTION [None]
